APPROVED DRUG PRODUCT: CLONAZEPAM
Active Ingredient: CLONAZEPAM
Strength: 0.5MG
Dosage Form/Route: TABLET;ORAL
Application: A074869 | Product #001 | TE Code: AB
Applicant: ACTAVIS ELIZABETH LLC
Approved: Oct 31, 1996 | RLD: No | RS: No | Type: RX